FAERS Safety Report 6130162-X (Version None)
Quarter: 2009Q1

REPORT INFORMATION
  Report Type: 
  Country: None (occurrence: None)
  Receive Date: 20090324
  Receipt Date: 20090313
  Transmission Date: 20090719
  Serious: Yes (Other)
  Sender: FDA-Public Use
  Company Number: US-AMGEN-US338431

PATIENT
  Sex: Female

DRUGS (3)
  1. NPLATE [Suspect]
     Indication: IDIOPATHIC THROMBOCYTOPENIC PURPURA
     Dates: start: 20090112, end: 20090218
  2. IMMUNOGLOBULINS [Concomitant]
     Route: 042
     Dates: start: 20000101
  3. CORTICOSTEROIDS [Concomitant]
     Dates: start: 19990901

REACTIONS (1)
  - THERAPEUTIC RESPONSE DECREASED [None]
